FAERS Safety Report 7589181-9 (Version None)
Quarter: 2011Q3

REPORT INFORMATION
  Report Type: 
  Country: None (occurrence: None)
  Receive Date: 20110705
  Receipt Date: 20110624
  Transmission Date: 20111222
  Serious: Yes (Other)
  Sender: FDA-Public Use
  Company Number: GB-JNJFOC-20110611701

PATIENT
  Age: 47 Year
  Sex: Male
  Weight: 113 kg

DRUGS (16)
  1. DARBEPOETIN ALFA [Suspect]
     Indication: PRODUCT USED FOR UNKNOWN INDICATION
     Route: 058
  2. ALPRAZOLAM [Suspect]
     Indication: PRODUCT USED FOR UNKNOWN INDICATION
     Route: 065
  3. LOPERAMIDE [Suspect]
     Indication: DIARRHOEA
     Route: 065
  4. ERLOTINIB HYDROCHLORIDE [Interacting]
     Indication: PRODUCT USED FOR UNKNOWN INDICATION
     Route: 048
  5. GRANISETRON [Suspect]
     Indication: CHEMOTHERAPY
     Route: 042
  6. OXYCODONE HCL [Suspect]
     Indication: PAIN
     Route: 065
  7. THERAPEUTIC RADIOPHARMACEUTICALS [Suspect]
     Indication: RADIOTHERAPY
     Route: 065
  8. VITAMIN K TAB [Suspect]
     Indication: PRODUCT USED FOR UNKNOWN INDICATION
     Route: 065
  9. WARFARIN SODIUM [Interacting]
     Indication: PRODUCT USED FOR UNKNOWN INDICATION
     Route: 065
  10. CARBOPLATIN [Suspect]
     Indication: CHEMOTHERAPY
     Route: 042
  11. DEXAMETHASONE [Suspect]
     Indication: PRODUCT USED FOR UNKNOWN INDICATION
     Route: 065
  12. DIPHENHYDRAMINE HCL [Suspect]
     Indication: PRODUCT USED FOR UNKNOWN INDICATION
     Route: 065
  13. PACLITAXEL [Suspect]
     Indication: CHEMOTHERAPY
     Route: 042
  14. BEVACIZUMAB [Suspect]
     Indication: CHEMOTHERAPY
     Route: 065
  15. CIMETIDINE [Suspect]
     Indication: PRODUCT USED FOR UNKNOWN INDICATION
     Route: 042
  16. CITALOPRAM HYDROBROMIDE [Suspect]
     Indication: PRODUCT USED FOR UNKNOWN INDICATION
     Route: 065

REACTIONS (6)
  - HAEMATOMA [None]
  - CONTUSION [None]
  - DIARRHOEA [None]
  - INTERNATIONAL NORMALISED RATIO INCREASED [None]
  - SWELLING [None]
  - DRUG INTERACTION [None]
